FAERS Safety Report 22345380 (Version 2)
Quarter: 2023Q2

REPORT INFORMATION
  Report Type: Spontaneous
  Country: US (occurrence: US)
  Receive Date: 20230519
  Receipt Date: 20230525
  Transmission Date: 20230722
  Serious: Yes (Other)
  Sender: FDA-Public Use
  Company Number: US-PFIZER INC-PV202300088044

PATIENT
  Age: 28 Year
  Sex: Male

DRUGS (2)
  1. EUCRISA [Suspect]
     Active Substance: CRISABOROLE
     Indication: Eczema
     Dosage: APPLY TO AFFECTED AREA OF SKIN TWICE A DAY AS NEEDED
     Route: 061
  2. BUDESONIDE\FORMOTEROL FUMARATE [Suspect]
     Active Substance: BUDESONIDE\FORMOTEROL FUMARATE
     Dosage: UNK

REACTIONS (6)
  - Haemorrhage [Unknown]
  - Therapeutic product effect incomplete [Unknown]
  - Pain [Unknown]
  - Swelling [Unknown]
  - Melanocytic naevus [Unknown]
  - Condition aggravated [Unknown]
